FAERS Safety Report 25343139 (Version 1)
Quarter: 2025Q2

REPORT INFORMATION
  Report Type: Spontaneous
  Country: CN (occurrence: CN)
  Receive Date: 20250521
  Receipt Date: 20250521
  Transmission Date: 20250717
  Serious: Yes (Life-Threatening, Other)
  Sender: PFIZER
  Company Number: CN-PFIZER INC-PV202500059547

PATIENT
  Age: 3 Month
  Sex: Male

DRUGS (5)
  1. SIROLIMUS [Suspect]
     Active Substance: SIROLIMUS
     Indication: Lymphatic malformation
     Dosage: 0.2 MG, 1X/DAY
     Route: 048
  2. SIROLIMUS [Suspect]
     Active Substance: SIROLIMUS
     Dosage: INCREASED TO 0.4 MG, 1X/DAY
     Route: 048
  3. SIROLIMUS [Suspect]
     Active Substance: SIROLIMUS
     Dosage: DOSE ADJUSTED TO 0.3 MG, DAILY
     Route: 048
  4. SIROLIMUS [Suspect]
     Active Substance: SIROLIMUS
     Dosage: REDUCED TO 0.2 MG, DAILY
     Route: 048
  5. SULFAMETHOXAZOLE\TRIMETHOPRIM [Concomitant]
     Active Substance: SULFAMETHOXAZOLE\TRIMETHOPRIM
     Indication: Pneumocystis jirovecii pneumonia
     Dosage: 30 MG/KG/DAY, ADMINISTERED TWICE DAILY, THREE TIMES PER WEEK
     Route: 048

REACTIONS (4)
  - Hepatic enzyme increased [Recovered/Resolved]
  - Pneumonia [Unknown]
  - Off label use [Unknown]
  - Off label use [Unknown]
